FAERS Safety Report 23704447 (Version 2)
Quarter: 2024Q2

REPORT INFORMATION
  Report Type: Report from Study
  Country: JP (occurrence: JP)
  Receive Date: 20240404
  Receipt Date: 20240411
  Transmission Date: 20240715
  Serious: Yes (Death, Other)
  Sender: FDA-Public Use
  Company Number: JP-SA-2024SA099920

PATIENT
  Age: 87 Year
  Sex: Male
  Weight: 47.5 kg

DRUGS (13)
  1. CAPLACIZUMAB [Suspect]
     Active Substance: CAPLACIZUMAB
     Indication: Thrombotic thrombocytopenic purpura
     Dosage: DOSE PER ADMINISTRATION: 10 MG (DURING PLASMA EXCHANGE), QD
     Route: 058
     Dates: start: 20231213, end: 20231215
  2. CAPLACIZUMAB [Suspect]
     Active Substance: CAPLACIZUMAB
     Indication: Thrombotic thrombocytopenic purpura
     Dosage: DOSE PER ADMINISTRATION: 10 MG (DURING PLASMA EXCHANGE), QD
     Route: 058
     Dates: start: 20231213, end: 20231215
  3. CAPLACIZUMAB [Suspect]
     Active Substance: CAPLACIZUMAB
     Indication: Thrombotic thrombocytopenic purpura
     Dosage: DOSE PER ADMINISTRATION: 10 MG (DURING PLASMA EXCHANGE), QD
     Route: 058
     Dates: start: 20231213, end: 20231215
  4. CAPLACIZUMAB [Suspect]
     Active Substance: CAPLACIZUMAB
     Indication: Thrombotic thrombocytopenic purpura
     Dosage: DOSE PER ADMINISTRATION: 10 MG (DURING PLASMA EXCHANGE), QD
     Route: 058
     Dates: start: 20231213, end: 20231215
  5. CAPLACIZUMAB [Suspect]
     Active Substance: CAPLACIZUMAB
     Dosage: DOSE PER ADMINISTRATION: 10 MG (BEFORE PLASMA EXCHANGE)
     Route: 042
     Dates: start: 20231213, end: 20231213
  6. CAPLACIZUMAB [Suspect]
     Active Substance: CAPLACIZUMAB
     Dosage: DOSE PER ADMINISTRATION: 10 MG (BEFORE PLASMA EXCHANGE)
     Route: 042
     Dates: start: 20231213, end: 20231213
  7. CAPLACIZUMAB [Suspect]
     Active Substance: CAPLACIZUMAB
     Dosage: DOSE PER ADMINISTRATION: 10 MG (BEFORE PLASMA EXCHANGE)
     Route: 042
     Dates: start: 20231213, end: 20231213
  8. CAPLACIZUMAB [Suspect]
     Active Substance: CAPLACIZUMAB
     Dosage: DOSE PER ADMINISTRATION: 10 MG (BEFORE PLASMA EXCHANGE)
     Route: 042
     Dates: start: 20231213, end: 20231213
  9. CAPLACIZUMAB [Suspect]
     Active Substance: CAPLACIZUMAB
     Dosage: DOSE PER ADMINISTRATION: 10 MG (AFTER THE END OF THE FIRST PLASMA EXCHANGE)
     Route: 058
     Dates: start: 20231213, end: 20231213
  10. CAPLACIZUMAB [Suspect]
     Active Substance: CAPLACIZUMAB
     Dosage: DOSE PER ADMINISTRATION: 10 MG (AFTER THE END OF THE FIRST PLASMA EXCHANGE)
     Route: 058
     Dates: start: 20231213, end: 20231213
  11. CAPLACIZUMAB [Suspect]
     Active Substance: CAPLACIZUMAB
     Dosage: DOSE PER ADMINISTRATION: 10 MG (AFTER THE END OF THE FIRST PLASMA EXCHANGE)
     Route: 058
     Dates: start: 20231213, end: 20231213
  12. CAPLACIZUMAB [Suspect]
     Active Substance: CAPLACIZUMAB
     Dosage: DOSE PER ADMINISTRATION: 10 MG (AFTER THE END OF THE FIRST PLASMA EXCHANGE)
     Route: 058
     Dates: start: 20231213, end: 20231213
  13. SOLU-MEDROL [Concomitant]
     Active Substance: METHYLPREDNISOLONE SODIUM SUCCINATE
     Indication: Thrombotic thrombocytopenic purpura
     Dosage: 1000 MG, TIW
     Route: 065
     Dates: start: 20231213, end: 20231215

REACTIONS (1)
  - Myocardial infarction [Fatal]

NARRATIVE: CASE EVENT DATE: 20231215
